FAERS Safety Report 7846239-4 (Version None)
Quarter: 2011Q4

REPORT INFORMATION
  Report Type: 
  Country: None (occurrence: None)
  Receive Date: 20111025
  Receipt Date: 20111024
  Transmission Date: 20120403
  Serious: Yes (Other)
  Sender: FDA-Public Use
  Company Number: US-ROCHE-1006590

PATIENT
  Sex: Female

DRUGS (1)
  1. XOLAIR [Suspect]
     Indication: ASTHMA
     Route: 058
     Dates: start: 20100217

REACTIONS (4)
  - RHINORRHOEA [None]
  - BLOOD PRESSURE INCREASED [None]
  - INCREASED UPPER AIRWAY SECRETION [None]
  - MALAISE [None]
